FAERS Safety Report 9054117 (Version 2)
Quarter: 2013Q1

REPORT INFORMATION
  Report Type: Spontaneous
  Country: US (occurrence: US)
  Receive Date: 20130208
  Receipt Date: 20130326
  Transmission Date: 20140127
  Serious: Yes (Death, Hospitalization)
  Sender: FDA-Public Use
  Company Number: US-PFIZER INC-2013049184

PATIENT
  Age: 73 Year
  Sex: Male

DRUGS (1)
  1. REVATIO [Suspect]
     Indication: PULMONARY HYPERTENSION
     Dosage: 20 MG, 3X/DAY
     Dates: start: 20120326

REACTIONS (5)
  - Pulmonary hypertension [Fatal]
  - Loss of consciousness [Unknown]
  - Dyspnoea [Unknown]
  - Syncope [Unknown]
  - Acute myocardial infarction [Unknown]
